FAERS Safety Report 6651558-3 (Version None)
Quarter: 2010Q1

REPORT INFORMATION
  Report Type: 
  Country: None (occurrence: None)
  Receive Date: 20100325
  Receipt Date: 20100311
  Transmission Date: 20100710
  Serious: Yes (Other)
  Sender: FDA-Public Use
  Company Number: B0635842A

PATIENT
  Age: 45 Year
  Sex: Male

DRUGS (1)
  1. FORTUM [Suspect]
     Indication: DRUG USE FOR UNKNOWN INDICATION
     Route: 042
     Dates: start: 20100209, end: 20100209

REACTIONS (8)
  - BLOOD PRESSURE INCREASED [None]
  - CHEST DISCOMFORT [None]
  - GASTRITIS [None]
  - IDIOSYNCRATIC DRUG REACTION [None]
  - NAUSEA [None]
  - PRODUCT QUALITY ISSUE [None]
  - RASH [None]
  - VOMITING [None]
